FAERS Safety Report 6655295-0 (Version None)
Quarter: 2010Q1

REPORT INFORMATION
  Report Type: 
  Country: None (occurrence: None)
  Receive Date: 20100324
  Receipt Date: 20100308
  Transmission Date: 20100710
  Serious: Yes (Hospitalization)
  Sender: FDA-Public Use
  Company Number: JP-SOLVAY-00310001410

PATIENT
  Age: 63 Year
  Sex: Female

DRUGS (11)
  1. LUVOX [Suspect]
     Indication: DEPRESSION
     Dosage: 25 MILLIGRAM(S) ORAL
     Route: 048
     Dates: start: 20100210, end: 20100215
  2. COTRIM [Suspect]
     Indication: DRUG USE FOR UNKNOWN INDICATION
     Dosage: ORAL
     Route: 048
     Dates: start: 20100119, end: 20100216
  3. NOVAMIN (PROCHLORPERAZINE MALEATE) [Suspect]
     Indication: DRUG USE FOR UNKNOWN INDICATION
     Dosage: 50 MILLIGRAM(S), ORAL
     Route: 048
     Dates: start: 20100106, end: 20100215
  4. MIRTAZAPINE [Concomitant]
  5. ALOSENN (SENNA LEAF-SENNA POD) [Concomitant]
  6. MAGMITT (MAGNESIUM OXIDE) [Concomitant]
  7. RIZE (CLOTIAZEPAM) [Concomitant]
  8. AMLODIPINE BESYLATE [Concomitant]
  9. ASPARA POTASSIUM (POTASSIUM L-ASPARTATE) [Concomitant]
  10. URSO 250 [Concomitant]
  11. OMEPRAZOLE [Concomitant]

REACTIONS (1)
  - HEPATIC FUNCTION ABNORMAL [None]
